FAERS Safety Report 18694281 (Version 1)
Quarter: 2021Q1

REPORT INFORMATION
  Report Type: Spontaneous
  Country: ES (occurrence: ES)
  Receive Date: 20210104
  Receipt Date: 20210104
  Transmission Date: 20210419
  Serious: Yes (Hospitalization)
  Sender: FDA-Public Use
  Company Number: NVSC2020ES344229

PATIENT
  Age: 27 Year
  Sex: Male

DRUGS (3)
  1. LORAZEPAM. [Concomitant]
     Active Substance: LORAZEPAM
     Indication: ANXIETY
     Dosage: 2 MG, Q24H (2?0?0  1 MG)
     Route: 048
     Dates: start: 20200429
  2. CARBAMAZEPINE. [Suspect]
     Active Substance: CARBAMAZEPINE
     Indication: BIPOLAR DISORDER
     Route: 048
     Dates: start: 20201130, end: 20201214
  3. LORMETAZEPAM [Concomitant]
     Active Substance: LORMETAZEPAM
     Indication: ANXIETY
     Dosage: 2 MG, Q24H (0?0?1, 2 MG)
     Route: 048
     Dates: start: 20200429

REACTIONS (2)
  - Rash maculo-papular [Unknown]
  - Enanthema [Unknown]

NARRATIVE: CASE EVENT DATE: 20201213
